FAERS Safety Report 21320270 (Version 2)
Quarter: 2022Q3

REPORT INFORMATION
  Report Type: Report from Study
  Country: US (occurrence: US)
  Receive Date: 20220911
  Receipt Date: 20220930
  Transmission Date: 20221027
  Serious: No
  Sender: FDA-Public Use
  Company Number: US-SA-SAC20220908001072

PATIENT
  Sex: Female

DRUGS (1)
  1. TERIFLUNOMIDE [Suspect]
     Active Substance: TERIFLUNOMIDE
     Indication: Multiple sclerosis
     Dosage: UNK
     Route: 048
     Dates: start: 20211112

REACTIONS (7)
  - Pain [Recovered/Resolved]
  - Anxiety [Recovered/Resolved]
  - Food intolerance [Recovered/Resolved]
  - Throat clearing [Recovered/Resolved]
  - Alopecia [Recovered/Resolved]
  - Hysterectomy [Recovered/Resolved]
  - Unevaluable event [Recovered/Resolved]
